FAERS Safety Report 20381067 (Version 1)
Quarter: 2022Q1

REPORT INFORMATION
  Report Type: Spontaneous
  Country: GB (occurrence: GB)
  Receive Date: 20220127
  Receipt Date: 20220127
  Transmission Date: 20220424
  Serious: Yes (Other)
  Sender: FDA-Public Use
  Company Number: GB-MHRA-EMIS-673-3c503b0e-484a-49a0-94a7-da9c3c98df71

PATIENT
  Age: 51 Year
  Sex: Male
  Weight: 112.4 kg

DRUGS (7)
  1. DULOXETINE [Suspect]
     Active Substance: DULOXETINE
     Indication: Rotator cuff syndrome
     Dosage: 30 MILLIGRAM, ONCE A DAY
     Route: 065
     Dates: start: 20211208
  2. AMITRIPTYLINE [Concomitant]
     Active Substance: AMITRIPTYLINE
     Indication: Arthralgia
     Dosage: 25 MILLIGRAM, ONCE A DAY (TAKEN AT NIGHT)
     Route: 065
     Dates: start: 20211104
  3. COMIRNATY [Concomitant]
     Active Substance: TOZINAMERAN
     Indication: Product used for unknown indication
     Dosage: 1 DOSAGE FORM
     Route: 030
     Dates: start: 20211208
  4. DIHYDROCODEINE [Concomitant]
     Active Substance: DIHYDROCODEINE
     Indication: Folliculitis
     Dosage: 30 MILLIGRAM (EVERY 4-6 HOURS, MAXIMUM 5 DAILY)
     Route: 065
     Dates: start: 20211115
  5. PREGABALIN [Concomitant]
     Active Substance: PREGABALIN
     Indication: Product used for unknown indication
     Dosage: 50MG, 150MG
     Route: 065
     Dates: start: 20220111
  6. PREGABALIN [Concomitant]
     Active Substance: PREGABALIN
     Indication: Rotator cuff syndrome
     Dosage: 1 DOSAGE FORM, 3 TIMES A DAY
     Route: 065
     Dates: start: 20211220
  7. TRAMADOL [Concomitant]
     Active Substance: TRAMADOL
     Indication: Arthralgia
     Dosage: 50 MILLIGRAM, ONCE A DAY (ONE OR TWO)
     Route: 065
     Dates: start: 20211104

REACTIONS (2)
  - Depression [Recovered/Resolved]
  - Dissociative disorder [Unknown]
